FAERS Safety Report 20016012 (Version 1)
Quarter: 2021Q4

REPORT INFORMATION
  Report Type: Spontaneous
  Country: US (occurrence: None)
  Receive Date: 20211102
  Receipt Date: 20211102
  Transmission Date: 20220303
  Serious: No
  Sender: FDA-Public Use
  Company Number: None

PATIENT
  Age: 51 Year
  Sex: Male
  Weight: 62.3 kg

DRUGS (1)
  1. CASIRIVIMAB\IMDEVIMAB [Suspect]
     Active Substance: CASIRIVIMAB\IMDEVIMAB
     Dosage: OTHER FREQUENCY : ONCE;?
     Route: 042
     Dates: start: 20210805, end: 20210805

REACTIONS (10)
  - Dyspnoea [None]
  - Pyrexia [None]
  - Respiratory failure [None]
  - Acute respiratory distress syndrome [None]
  - Deep vein thrombosis [None]
  - Pulmonary embolism [None]
  - Sputum culture positive [None]
  - Aspergillus test positive [None]
  - Klebsiella bacteraemia [None]
  - Upper gastrointestinal haemorrhage [None]

NARRATIVE: CASE EVENT DATE: 20210805
